FAERS Safety Report 8249480-4 (Version None)
Quarter: 2012Q1

REPORT INFORMATION
  Report Type: 
  Country: None (occurrence: None)
  Receive Date: 20120328
  Receipt Date: 20120314
  Transmission Date: 20120608
  Serious: Yes (Hospitalization, Other)
  Sender: FDA-Public Use
  Company Number: AXC-2011-000537

PATIENT
  Age: 57 Year
  Sex: Male

DRUGS (3)
  1. URSODIOL [Suspect]
     Indication: PRODUCT USED FOR UNKNOWN INDICATION
     Dosage: 400 MG, QD, ORAL
     Route: 048
     Dates: start: 20111021, end: 20111111
  2. OZAGREL /01030902/ (OZAGREL SODIUM) [Suspect]
     Indication: PRODUCT USED FOR UNKNOWN INDICATION
     Dosage: 160 MG, QD, INTRAVENOUS
     Route: 042
     Dates: start: 20111107, end: 20111112
  3. PLAVIX [Suspect]
     Indication: PRODUCT USED FOR UNKNOWN INDICATION
     Dosage: 75 MG, QD, ORAL
     Route: 048
     Dates: start: 20111107, end: 20111111

REACTIONS (11)
  - HYPOAESTHESIA [None]
  - HYPOKALAEMIA [None]
  - MALABSORPTION [None]
  - HYPOGLYCAEMIA [None]
  - PANCREATITIS CHRONIC [None]
  - INTERSTITIAL LUNG DISEASE [None]
  - OEDEMA PERIPHERAL [None]
  - RESPIRATORY RATE INCREASED [None]
  - PYREXIA [None]
  - CEREBRAL INFARCTION [None]
  - DIARRHOEA [None]
